FAERS Safety Report 8853311 (Version 1)
Quarter: 2012Q4

REPORT INFORMATION
  Report Type: 
  Country: ZA (occurrence: ZA)
  Receive Date: 20121022
  Receipt Date: 20121022
  Transmission Date: 20130627
  Serious: Yes (Other)
  Sender: FDA-Public Use
  Company Number: ZA-ASTRAZENECA-2012SE78699

PATIENT
  Age: 51 Year
  Sex: Male
  Weight: 103 kg

DRUGS (7)
  1. NEXIAM [Suspect]
     Route: 048
     Dates: start: 2010
  2. EPILIM 500MG [Concomitant]
     Indication: EPILEPSY
     Route: 048
     Dates: start: 2010
  3. PREXUM [Concomitant]
     Dosage: 1 TABLET, DAILY
     Route: 048
     Dates: start: 2010
  4. BILICOR [Concomitant]
     Route: 048
     Dates: start: 2010
  5. SERDEP [Concomitant]
     Route: 048
     Dates: start: 2010
  6. CRESTOR [Concomitant]
     Route: 048
     Dates: start: 2010
  7. ECOTRIN [Concomitant]
     Dosage: 1 TABLET DAILY
     Route: 048

REACTIONS (3)
  - Convulsion [Unknown]
  - Cerebrovascular accident [Unknown]
  - Drug level decreased [Unknown]
